FAERS Safety Report 18693006 (Version 1)
Quarter: 2021Q1

REPORT INFORMATION
  Report Type: Spontaneous
  Country: CH (occurrence: CH)
  Receive Date: 20210104
  Receipt Date: 20210104
  Transmission Date: 20210419
  Serious: Yes (Other)
  Sender: FDA-Public Use
  Company Number: CH-MSNLABS-2020MSNLIT00456

PATIENT

DRUGS (1)
  1. CAPECITABINE TABLETS 500 MG [Suspect]
     Active Substance: CAPECITABINE
     Indication: RECTAL CANCER
     Route: 065

REACTIONS (4)
  - Viral myelitis [Unknown]
  - Varicella zoster virus infection [Unknown]
  - Peripheral sensory neuropathy [Unknown]
  - Hemiparesis [Unknown]
